FAERS Safety Report 6591303-3 (Version None)
Quarter: 2010Q1

REPORT INFORMATION
  Report Type: 
  Country: None (occurrence: None)
  Receive Date: 20100219
  Receipt Date: 20100209
  Transmission Date: 20100710
  Serious: Yes (Other)
  Sender: FDA-Public Use
  Company Number: US-PFIZER INC-2010017868

PATIENT
  Sex: Female
  Weight: 56.689 kg

DRUGS (12)
  1. SERTRALINE HCL [Suspect]
     Indication: DEPRESSION
     Route: 048
  2. SERTRALINE HCL [Suspect]
     Indication: DEMENTIA
  3. CYMBALTA [Suspect]
     Indication: DEPRESSION
  4. CYMBALTA [Suspect]
     Indication: DEMENTIA
  5. PRANDIN [Concomitant]
     Indication: DIABETES MELLITUS
  6. TYLENOL (CAPLET) [Concomitant]
     Dosage: FREQUENCY: AS NEEDED
  7. TYLENOL (CAPLET) [Concomitant]
  8. COD-LIVER OIL [Concomitant]
  9. MULTI-VITAMINS [Concomitant]
  10. FLAXSEED OIL [Concomitant]
  11. MELATONIN [Concomitant]
  12. VITAMIN B-12 [Concomitant]

REACTIONS (4)
  - CHOKING [None]
  - DECREASED APPETITE [None]
  - DYSPHAGIA [None]
  - WEIGHT DECREASED [None]
